FAERS Safety Report 18977909 (Version 2)
Quarter: 2022Q1

REPORT INFORMATION
  Report Type: Spontaneous
  Country: US (occurrence: US)
  Receive Date: 20210306
  Receipt Date: 20220314
  Transmission Date: 20220423
  Serious: No
  Sender: FDA-Public Use
  Company Number: US-GALDERMA-US2021001057

PATIENT

DRUGS (3)
  1. TRI-LUMA [Suspect]
     Active Substance: FLUOCINOLONE ACETONIDE\HYDROQUINONE\TRETINOIN
     Indication: Product used for unknown indication
     Dosage: FLUOCINOLONE ACETONIDE 0.01%, HYDROQUINONE 4%, TRETINOIN 0.05%,
     Route: 061
     Dates: start: 20201025
  2. TRI-LUMA [Suspect]
     Active Substance: FLUOCINOLONE ACETONIDE\HYDROQUINONE\TRETINOIN
     Dosage: 1 DOSAGE FORM, UNK,
     Route: 061
     Dates: start: 20201027, end: 202012
  3. TRI-LUMA [Suspect]
     Active Substance: FLUOCINOLONE ACETONIDE\HYDROQUINONE\TRETINOIN
     Dosage: 1 DOSAGE FORM, UNK,
     Route: 061
     Dates: start: 202012, end: 202012

REACTIONS (5)
  - Skin burning sensation [Recovered/Resolved]
  - Inappropriate schedule of product administration [Recovered/Resolved]
  - Underdose [Recovered/Resolved]
  - Product colour issue [Recovered/Resolved]
  - Poor quality product administered [Recovered/Resolved]

NARRATIVE: CASE EVENT DATE: 20201025
